FAERS Safety Report 7224858 (Version 2)
Quarter: 2013Q2

REPORT INFORMATION
  Report Type: Spontaneous
  Country: US (occurrence: US)
  Receive Date: 20091221
  Receipt Date: 20130517
  Transmission Date: 20140414
  Serious: No
  Sender: FDA-Public Use
  Company Number: US-ASTRAZENECA-2008UW23879

PATIENT
  Age: 62 Year
  Sex: Female
  Weight: 92.5 kg

DRUGS (4)
  1. CRESTOR [Suspect]
     Indication: BLOOD CHOLESTEROL INCREASED
     Route: 048
     Dates: end: 200901
  2. CRESTOR [Suspect]
     Indication: BLOOD CHOLESTEROL INCREASED
     Route: 048
     Dates: start: 201303, end: 2013
  3. ATACAND [Suspect]
     Route: 048
  4. NEXIUM [Suspect]
     Route: 048

REACTIONS (3)
  - Muscle spasms [Unknown]
  - Insomnia [Unknown]
  - Pain in extremity [Unknown]
